FAERS Safety Report 17122191 (Version 3)
Quarter: 2020Q2

REPORT INFORMATION
  Report Type: Report from Study
  Country: None (occurrence: US)
  Receive Date: 20191206
  Receipt Date: 20200501
  Transmission Date: 20200713
  Serious: Yes (Other)
  Sender: FDA-Public Use
  Company Number: US-ABBVIE-19K-163-3180536-00

PATIENT
  Sex: Female
  Weight: 102.15 kg

DRUGS (2)
  1. HUMIRA [Suspect]
     Active Substance: ADALIMUMAB
     Indication: RHEUMATOID ARTHRITIS
     Dosage: CITRATE FREE
     Route: 058
  2. TYLENOL [Concomitant]
     Active Substance: ACETAMINOPHEN
     Indication: PAIN

REACTIONS (7)
  - Denture wearer [Unknown]
  - Tooth infection [Unknown]
  - Decubitus ulcer [Recovered/Resolved]
  - Fibromyalgia [Recovered/Resolved]
  - Gingivitis [Not Recovered/Not Resolved]
  - Cyst [Unknown]
  - Bone fragmentation [Unknown]

NARRATIVE: CASE EVENT DATE: 2016
